FAERS Safety Report 19483731 (Version 1)
Quarter: 2021Q3

REPORT INFORMATION
  Report Type: Spontaneous
  Country: US (occurrence: US)
  Receive Date: 20210701
  Receipt Date: 20210701
  Transmission Date: 20211014
  Serious: Yes (Other)
  Sender: FDA-Public Use
  Company Number: US-BRISTOL-MYERS SQUIBB COMPANY-BMS-2021-061190

PATIENT
  Age: 62 Year
  Sex: Female
  Weight: 65.77 kg

DRUGS (5)
  1. SPRYCEL [Suspect]
     Active Substance: DASATINIB
     Dosage: 80 MILLIGRAM, QD
     Route: 048
     Dates: end: 202101
  2. SPRYCEL [Suspect]
     Active Substance: DASATINIB
     Dosage: 70 MILLIGRAM, QD
     Route: 048
  3. SPRYCEL [Suspect]
     Active Substance: DASATINIB
     Dosage: 50 MILLIGRAM, QD
     Route: 048
  4. SPRYCEL [Suspect]
     Active Substance: DASATINIB
     Indication: CHRONIC MYELOID LEUKAEMIA
     Dosage: 100 MILLIGRAM, QD
     Route: 048
     Dates: start: 2017
  5. SPRYCEL [Suspect]
     Active Substance: DASATINIB
     Dosage: 20 MILLIGRAM, QD
     Route: 048

REACTIONS (4)
  - Fall [Unknown]
  - Pleural effusion [Not Recovered/Not Resolved]
  - Chest injury [Unknown]
  - Pulmonary mass [Unknown]

NARRATIVE: CASE EVENT DATE: 202006
